FAERS Safety Report 8848311 (Version 2)
Quarter: 2012Q4

REPORT INFORMATION
  Report Type: 
  Country: TW (occurrence: TW)
  Receive Date: 20121018
  Receipt Date: 20121031
  Transmission Date: 20130627
  Serious: Yes (Hospitalization)
  Sender: FDA-Public Use
  Company Number: TW-AMGEN-TWNSP2012066282

PATIENT
  Age: 68 Year
  Sex: Female

DRUGS (10)
  1. ENBREL [Suspect]
     Indication: RHEUMATOID ARTHRITIS
     Dosage: 25 mg, 2x/week
     Route: 058
     Dates: start: 20120928, end: 20121005
  2. ENBREL [Suspect]
     Dosage: 25 mg, 2x/week
     Route: 058
     Dates: start: 20121019
  3. MELOXICAM [Concomitant]
     Dosage: 15 mg, 1x/day
     Route: 048
  4. PLAQUENIL                          /00072602/ [Concomitant]
     Dosage: 1 DF, UNK
     Route: 048
  5. ARAVA [Concomitant]
     Dosage: 1 DF, 1x/day
  6. SALAZOPYRIN [Concomitant]
     Dosage: 500 mg, 1x/day
     Route: 048
  7. FOLIC ACID [Concomitant]
     Dosage: 5 mg, 1x/day
  8. PREDNISOLONE [Concomitant]
     Dosage: 5 mg, 1x/day
     Route: 048
  9. ETOFENAMATE [Concomitant]
     Dosage: UNK, UNK, tid
     Route: 061
  10. METHOTREXATE [Concomitant]
     Dosage: 10 mg, weekly
     Route: 048

REACTIONS (7)
  - Haematemesis [Recovering/Resolving]
  - Faeces discoloured [Unknown]
  - Gastric ulcer [Recovering/Resolving]
  - Gastrooesophageal reflux disease [Recovering/Resolving]
  - Gastritis erosive [Recovering/Resolving]
  - Hypovolaemic shock [Unknown]
  - Cholelithiasis [Unknown]
